FAERS Safety Report 25598827 (Version 2)
Quarter: 2025Q3

REPORT INFORMATION
  Report Type: Report from Study
  Country: US (occurrence: US)
  Receive Date: 20250724
  Receipt Date: 20250729
  Transmission Date: 20251020
  Serious: Yes (Other)
  Sender: AMGEN
  Company Number: US-AMGEN-USASP2024160792

PATIENT
  Age: 74 Year
  Sex: Female

DRUGS (10)
  1. EVENITY [Suspect]
     Active Substance: ROMOSOZUMAB-AQQG
     Indication: Osteoporosis
     Dosage: 210 MILLIGRAM, QMO
     Route: 058
     Dates: start: 202307, end: 202310
  2. EVENITY [Suspect]
     Active Substance: ROMOSOZUMAB-AQQG
     Dosage: 210 MILLIGRAM, QMO
     Route: 058
     Dates: start: 202405, end: 2024
  3. EVENITY [Suspect]
     Active Substance: ROMOSOZUMAB-AQQG
     Dosage: 210 MILLIGRAM, QMO
     Route: 058
     Dates: start: 202407
  4. CREON [Suspect]
     Active Substance: PANCRELIPASE AMYLASE\PANCRELIPASE LIPASE\PANCRELIPASE PROTEASE
     Indication: Pancreatic atrophy
     Route: 065
  5. CREON [Suspect]
     Active Substance: PANCRELIPASE AMYLASE\PANCRELIPASE LIPASE\PANCRELIPASE PROTEASE
     Indication: Blood calcium decreased
  6. COLACE [Concomitant]
     Active Substance: DOCUSATE SODIUM
     Indication: Constipation
  7. TAMOXIFEN [Concomitant]
     Active Substance: TAMOXIFEN
     Indication: Breast cancer
     Dosage: 20 MILLIGRAM, QOD
  8. ARMOUR THYROID [Concomitant]
     Active Substance: THYROID, PORCINE
     Indication: Hypothyroidism
  9. CALCIUM [Concomitant]
     Active Substance: CALCIUM
  10. VITAMIN D [Concomitant]
     Active Substance: VITAMIN D NOS

REACTIONS (7)
  - Pancreatic atrophy [Recovered/Resolved]
  - Constipation [Not Recovered/Not Resolved]
  - Diarrhoea [Not Recovered/Not Resolved]
  - Weight decreased [Recovered/Resolved]
  - Blood calcium decreased [Recovered/Resolved]
  - Malabsorption [Recovered/Resolved]
  - Therapeutic product effect incomplete [Unknown]

NARRATIVE: CASE EVENT DATE: 20230101
